FAERS Safety Report 6880144-5 (Version None)
Quarter: 2010Q3

REPORT INFORMATION
  Report Type: 
  Country: None (occurrence: None)
  Receive Date: 20100728
  Receipt Date: 20100114
  Transmission Date: 20110219
  Serious: No
  Sender: FDA-Public Use
  Company Number: US-BRISTOL-MYERS SQUIBB COMPANY-14934491

PATIENT
  Age: 72 Year
  Sex: Female
  Weight: 77 kg

DRUGS (5)
  1. SPRYCEL [Suspect]
     Indication: CHRONIC MYELOID LEUKAEMIA
     Dates: start: 20090603
  2. LEVOXYL [Concomitant]
  3. ATENOLOL [Concomitant]
  4. HYDROCODONE BITARTRATE [Concomitant]
  5. CENTRUM [Concomitant]

REACTIONS (1)
  - DYSSTASIA [None]
